FAERS Safety Report 8019948-4 (Version None)
Quarter: 2012Q1

REPORT INFORMATION
  Report Type: 
  Country: None (occurrence: None)
  Receive Date: 20120103
  Receipt Date: 20111226
  Transmission Date: 20120608
  Serious: Yes (Death, Other)
  Sender: FDA-Public Use
  Company Number: JP-PFIZER INC-2011313051

PATIENT
  Age: 39 Year
  Sex: Female

DRUGS (10)
  1. CYTARABINE [Suspect]
     Indication: PROPHYLAXIS
     Dosage: 40 MG, ON DAY 1
     Route: 037
  2. CYCLOPHOSPHAMIDE [Suspect]
     Indication: BURKITT'S LYMPHOMA
     Dosage: 1000 MG/M2, 2 HR, ON DAYS 2 AND 3
     Route: 041
  3. PREDNISOLONE [Suspect]
     Indication: PROPHYLAXIS
     Dosage: 20 MG, ON DAY 1
     Route: 037
  4. METHOTREXATE SODIUM [Suspect]
     Indication: PROPHYLAXIS
     Dosage: 15 MG, ON DAY 1
     Route: 037
  5. METHOTREXATE SODIUM [Suspect]
     Indication: BURKITT'S LYMPHOMA
     Dosage: 5000 MG/M2, 6 HR, ON DAY 1
     Route: 041
  6. PREDNISOLONE [Suspect]
     Indication: BURKITT'S LYMPHOMA
     Dosage: 60 MG/M2, IV OR O, ON DAYS 1-10
  7. GRANULOCYTE COLONY STIMULATING FACTOR [Concomitant]
     Dosage: 5 UG/M2, ON DAY 5
  8. LEUCOVORIN CALCIUM [Concomitant]
  9. DOXORUBICIN HCL [Suspect]
     Indication: BURKITT'S LYMPHOMA
     Dosage: 60 MG/M2, ON DAY 2
     Route: 042
  10. VINCRISTINE SULFATE [Suspect]
     Indication: BURKITT'S LYMPHOMA
     Dosage: 1.4 MG/M2, ON DAYS 1 AND 7
     Route: 042

REACTIONS (3)
  - SEPSIS [None]
  - INFECTIOUS PERITONITIS [None]
  - TUMOUR LYSIS SYNDROME [None]
